FAERS Safety Report 10724785 (Version 1)
Quarter: 2015Q1

REPORT INFORMATION
  Report Type: Spontaneous
  Country: DK (occurrence: DK)
  Receive Date: 20150120
  Receipt Date: 20150120
  Transmission Date: 20150721
  Serious: Yes (Hospitalization)
  Sender: FDA-Public Use
  Company Number: DK-JNJFOC-20150104291

PATIENT
  Age: 51 Year
  Sex: Female

DRUGS (6)
  1. SERTRALIN HCL [Suspect]
     Active Substance: SERTRALINE HYDROCHLORIDE
     Indication: ANXIETY
     Route: 048
  2. CITALOPRAM [Suspect]
     Active Substance: CITALOPRAM HYDROBROMIDE
     Indication: PRODUCT USED FOR UNKNOWN INDICATION
     Route: 065
     Dates: start: 2012, end: 2012
  3. SEROQUEL [Suspect]
     Active Substance: QUETIAPINE FUMARATE
     Indication: PRODUCT USED FOR UNKNOWN INDICATION
     Route: 048
     Dates: start: 20120316
  4. RISPERDAL [Suspect]
     Active Substance: RISPERIDONE
     Indication: PRODUCT USED FOR UNKNOWN INDICATION
     Route: 065
     Dates: end: 20120309
  5. TRUXAL [Suspect]
     Active Substance: CHLORPROTHIXENE
     Indication: PRODUCT USED FOR UNKNOWN INDICATION
     Route: 048
     Dates: end: 20120316
  6. LYSANTIN [Suspect]
     Active Substance: ORPHENADRINE HYDROCHLORIDE
     Indication: PRODUCT USED FOR UNKNOWN INDICATION
     Route: 048
     Dates: start: 20120309

REACTIONS (10)
  - Pain in jaw [Unknown]
  - Psychotic disorder [None]
  - Tongue biting [None]
  - Hospitalisation [Unknown]
  - Trigeminal neuralgia [Unknown]
  - Muscle twitching [None]
  - Mental disorder [Unknown]
  - Dyskinesia [Unknown]
  - Oromandibular dystonia [Unknown]
  - Dyskinesia [Unknown]

NARRATIVE: CASE EVENT DATE: 2008
